FAERS Safety Report 9391111 (Version 1)
Quarter: 2013Q3

REPORT INFORMATION
  Report Type: Spontaneous
  Country: VE (occurrence: VE)
  Receive Date: 20130709
  Receipt Date: 20130709
  Transmission Date: 20140515
  Serious: Yes (Other)
  Sender: FDA-Public Use
  Company Number: VE-PFIZER INC-2013201512

PATIENT
  Age: 83 Year
  Sex: Male

DRUGS (1)
  1. CADUET [Suspect]
     Dosage: 1 DF, UNK

REACTIONS (2)
  - Extremity necrosis [Unknown]
  - Gangrene [Unknown]
